FAERS Safety Report 6971922-2 (Version None)
Quarter: 2010Q3

REPORT INFORMATION
  Report Type: 
  Country: None (occurrence: None)
  Receive Date: 20100908
  Receipt Date: 20100908
  Transmission Date: 20110219
  Serious: Yes (Other)
  Sender: FDA-Public Use
  Company Number: None

PATIENT
  Age: 60 Year
  Sex: Female
  Weight: 78.9259 kg

DRUGS (1)
  1. ETOMIDATE [Suspect]
     Indication: ANAESTHESIA
     Dosage: ? 50 MG ONCE IV
     Route: 042
     Dates: start: 20100825, end: 20100827

REACTIONS (2)
  - ERYTHEMA [None]
  - INJECTION SITE PHLEBITIS [None]
